FAERS Safety Report 14209835 (Version 6)
Quarter: 2018Q2

REPORT INFORMATION
  Report Type: Spontaneous
  Country: US (occurrence: US)
  Receive Date: 20171121
  Receipt Date: 20180509
  Transmission Date: 20180711
  Serious: Yes (Death, Hospitalization)
  Sender: FDA-Public Use
  Company Number: US-PFIZER INC-2017498127

PATIENT
  Age: 59 Year
  Sex: Female
  Weight: 103.4 kg

DRUGS (3)
  1. XALKORI [Suspect]
     Active Substance: CRIZOTINIB
     Dosage: 250 MG, 2X/DAY
     Route: 048
     Dates: start: 20171108, end: 201803
  2. XALKORI [Suspect]
     Active Substance: CRIZOTINIB
     Indication: LUNG CANCER METASTATIC
     Dosage: 250 MG, 2X/DAY
     Route: 048
     Dates: start: 20171108
  3. XALKORI [Suspect]
     Active Substance: CRIZOTINIB
     Dosage: 250 MG, DAILY
     Route: 048
     Dates: start: 20171108

REACTIONS (8)
  - Death [Fatal]
  - Asthenia [Unknown]
  - Decreased appetite [Unknown]
  - Nausea [Unknown]
  - Hepatic enzyme increased [Recovered/Resolved]
  - Vomiting [Unknown]
  - Dysphagia [Unknown]
  - Renal disorder [Unknown]
